FAERS Safety Report 16825539 (Version 1)
Quarter: 2019Q3

REPORT INFORMATION
  Report Type: Spontaneous
  Country: US (occurrence: US)
  Receive Date: 20190919
  Receipt Date: 20190919
  Transmission Date: 20191005
  Serious: No
  Sender: FDA-Public Use
  Company Number: US-AUROBINDO-AUR-APU-2018-043623

PATIENT

DRUGS (1)
  1. ONDANSETRON HYDROCHLORIDE TABLETS 4 MG [Suspect]
     Active Substance: ONDANSETRON HYDROCHLORIDE
     Indication: NAUSEA
     Dosage: 2 TO 4 TABLETS PER DAY
     Route: 065

REACTIONS (2)
  - Maternal exposure during pregnancy [Unknown]
  - Product dispensing error [Unknown]
